FAERS Safety Report 12387487 (Version 2)
Quarter: 2016Q3

REPORT INFORMATION
  Report Type: Spontaneous
  Country: IT (occurrence: IT)
  Receive Date: 20160520
  Receipt Date: 20160707
  Transmission Date: 20161109
  Serious: Yes (Hospitalization)
  Sender: FDA-Public Use
  Company Number: IT-MYLANLABS-2016M1020269

PATIENT

DRUGS (1)
  1. CIPROFLOXACIN. [Suspect]
     Active Substance: CIPROFLOXACIN
     Indication: BACTERIAL INFECTION
     Dosage: 1 DF, TOTAL
     Route: 048
     Dates: start: 20160413, end: 20160413

REACTIONS (7)
  - Odynophagia [Unknown]
  - Local swelling [Unknown]
  - Pyrexia [Unknown]
  - Hypersensitivity [Unknown]
  - Heart rate increased [Unknown]
  - Dysphonia [Unknown]
  - Tenderness [Unknown]

NARRATIVE: CASE EVENT DATE: 20160413
